APPROVED DRUG PRODUCT: BICALUTAMIDE
Active Ingredient: BICALUTAMIDE
Strength: 50MG
Dosage Form/Route: TABLET;ORAL
Application: A091011 | Product #001 | TE Code: AB
Applicant: CHARTWELL RX SCIENCES LLC
Approved: Jun 10, 2015 | RLD: No | RS: No | Type: RX